FAERS Safety Report 12492323 (Version 2)
Quarter: 2016Q3

REPORT INFORMATION
  Report Type: Spontaneous
  Country: GB (occurrence: GB)
  Receive Date: 20160623
  Receipt Date: 20160729
  Transmission Date: 20161109
  Serious: Yes (Life-Threatening, Other)
  Sender: FDA-Public Use
  Company Number: GB-TEVA-668581ACC

PATIENT
  Age: 33 Year
  Sex: Male
  Weight: 95.25 kg

DRUGS (3)
  1. CIPROFLOXACIN. [Suspect]
     Active Substance: CIPROFLOXACIN
     Indication: PROSTATITIS
     Dosage: 1000 MILLIGRAM DAILY;
     Route: 048
     Dates: start: 20160209, end: 20160308
  2. CITALOPRAM [Concomitant]
     Active Substance: CITALOPRAM HYDROBROMIDE
     Indication: ANXIETY
     Dosage: UNK
     Dates: start: 20160204
  3. TAMSULOSIN [Concomitant]
     Active Substance: TAMSULOSIN
     Indication: PROSTATIC DISORDER
     Dosage: UNK?
     Dates: start: 20160209, end: 20160308

REACTIONS (14)
  - Suicidal ideation [Recovering/Resolving]
  - Neuropathy peripheral [Recovering/Resolving]
  - Tendon disorder [Not Recovered/Not Resolved]
  - Tendon pain [Not Recovered/Not Resolved]
  - Skin burning sensation [Recovering/Resolving]
  - Photopsia [Not Recovered/Not Resolved]
  - Insomnia [Recovered/Resolved with Sequelae]
  - Joint crepitation [Not Recovered/Not Resolved]
  - Restlessness [Recovered/Resolved]
  - Tendon discomfort [Not Recovered/Not Resolved]
  - Depression [Recovering/Resolving]
  - Tinnitus [Recovering/Resolving]
  - Muscle twitching [Recovering/Resolving]
  - Dysgeusia [Recovered/Resolved]

NARRATIVE: CASE EVENT DATE: 20160302
